FAERS Safety Report 7276305-6 (Version None)
Quarter: 2011Q1

REPORT INFORMATION
  Report Type: 
  Country: None (occurrence: None)
  Receive Date: 20110202
  Receipt Date: 20110202
  Transmission Date: 20110831
  Serious: Yes (Other)
  Sender: FDA-Public Use
  Company Number: None

PATIENT
  Age: 24 Year
  Sex: Female

DRUGS (1)
  1. RISPERIDONE [Suspect]
     Dosage: 2MG ONCE PO
     Route: 048
     Dates: start: 20110108, end: 20110108

REACTIONS (2)
  - SPEECH DISORDER [None]
  - JOINT STIFFNESS [None]
